FAERS Safety Report 8254630-X (Version None)
Quarter: 2012Q2

REPORT INFORMATION
  Report Type: 
  Country: None (occurrence: None)
  Receive Date: 20120403
  Receipt Date: 20120323
  Transmission Date: 20120825
  Serious: Yes (Hospitalization)
  Sender: FDA-Public Use
  Company Number: US-CELGENEUS-163-21880-09042105

PATIENT
  Sex: Female

DRUGS (24)
  1. LASIX [Concomitant]
     Dosage: 40 MILLIGRAM
     Route: 048
  2. PROCRIT [Concomitant]
     Route: 065
  3. AMBIEN [Concomitant]
     Dosage: 10
     Route: 065
  4. FUROSEMIDE [Concomitant]
     Indication: ATRIAL FIBRILLATION
     Route: 065
  5. REVLIMID [Suspect]
     Indication: MULTIPLE MYELOMA
     Dosage: 25 MILLIGRAM
     Route: 048
     Dates: start: 20090324, end: 20090411
  6. DECADRON [Concomitant]
     Dosage: 40 MILLIGRAM
     Route: 065
  7. CERON DM [Concomitant]
     Route: 048
  8. LANTUS [Concomitant]
     Route: 065
  9. MECLIZINE [Concomitant]
     Indication: VERTIGO
     Dosage: 25 MILLIGRAM
     Route: 065
  10. ALBUTEROL [Concomitant]
     Indication: ASTHMA
     Dosage: 2 PUFFS
     Route: 055
  11. SINGULAIR [Concomitant]
     Route: 065
  12. NASACORT [Concomitant]
     Route: 065
  13. ZOMETA [Concomitant]
     Dosage: 4 MILLIGRAM
     Route: 065
  14. CATAPRES [Concomitant]
     Indication: HYPERTENSION
     Dosage: .1 MILLIGRAM
     Route: 065
  15. GLIPIZIDE [Concomitant]
     Dosage: 5 MILLIGRAM
     Route: 048
  16. ALLOPURINOL [Concomitant]
     Dosage: 300 MILLIGRAM
     Route: 065
  17. AZOR [Concomitant]
     Dosage: 10/20
     Route: 048
  18. METFORMIN HCL [Concomitant]
     Dosage: 1000 MILLIGRAM
     Route: 065
  19. LOPRESSOR [Concomitant]
     Dosage: 30 MILLIGRAM
     Route: 048
  20. TRAMADOL HCL [Concomitant]
     Indication: PAIN
     Dosage: 50
     Route: 048
  21. AMLODIPINE [Concomitant]
     Indication: HYPERTENSION
     Route: 065
  22. REVLIMID [Suspect]
     Dates: start: 20120101
  23. PHENYLEPHRINE HCL [Concomitant]
     Route: 065
  24. OXYGEN [Concomitant]
     Route: 065

REACTIONS (12)
  - DYSPNOEA [None]
  - CARDIAC FAILURE CONGESTIVE [None]
  - PYREXIA [None]
  - DRUG INTOLERANCE [None]
  - PULMONARY OEDEMA [None]
  - RESPIRATORY FAILURE [None]
  - RASH PRURITIC [None]
  - ASTHENIA [None]
  - NAUSEA [None]
  - LETHARGY [None]
  - ATRIAL FIBRILLATION [None]
  - NEUROPATHY PERIPHERAL [None]
